FAERS Safety Report 21456391 (Version 2)
Quarter: 2022Q4

REPORT INFORMATION
  Report Type: Report from Study
  Country: JP (occurrence: JP)
  Receive Date: 20221014
  Receipt Date: 20221020
  Transmission Date: 20230113
  Serious: Yes (Other)
  Sender: FDA-Public Use
  Company Number: JP-BEH-2022150365

PATIENT
  Age: 4 Year
  Sex: Male

DRUGS (10)
  1. IDELVION [Suspect]
     Active Substance: COAGULATION FACTOR IX RECOMBINANT HUMAN
     Indication: Factor IX deficiency
     Dosage: 1250 INTERNATIONAL UNIT, QOW
     Route: 042
     Dates: start: 20211119
  2. IDELVION [Suspect]
     Active Substance: COAGULATION FACTOR IX RECOMBINANT HUMAN
     Indication: Factor IX deficiency
     Dosage: 1250 INTERNATIONAL UNIT, QOW
     Route: 042
     Dates: start: 20211119
  3. IDELVION [Suspect]
     Active Substance: COAGULATION FACTOR IX RECOMBINANT HUMAN
     Indication: Haemorrhage prophylaxis
     Dosage: 1250 INTERNATIONAL UNIT, SINGLE
     Route: 042
     Dates: start: 20220826, end: 20220826
  4. IDELVION [Suspect]
     Active Substance: COAGULATION FACTOR IX RECOMBINANT HUMAN
     Indication: Haemorrhage prophylaxis
     Dosage: 1250 INTERNATIONAL UNIT, SINGLE
     Route: 042
     Dates: start: 20220826, end: 20220826
  5. IDELVION [Suspect]
     Active Substance: COAGULATION FACTOR IX RECOMBINANT HUMAN
     Dosage: 1250 INTERNATIONAL UNIT, SINGLE
     Route: 042
     Dates: start: 20220826, end: 20220826
  6. IDELVION [Suspect]
     Active Substance: COAGULATION FACTOR IX RECOMBINANT HUMAN
     Dosage: 1250 INTERNATIONAL UNIT, SINGLE
     Route: 042
     Dates: start: 20220826, end: 20220826
  7. IDELVION [Suspect]
     Active Substance: COAGULATION FACTOR IX RECOMBINANT HUMAN
     Dosage: 1250 INTERNATIONAL UNIT, SINGLE
     Route: 042
     Dates: start: 20220903, end: 20220903
  8. IDELVION [Suspect]
     Active Substance: COAGULATION FACTOR IX RECOMBINANT HUMAN
     Dosage: 1250 INTERNATIONAL UNIT, SINGLE
     Route: 042
     Dates: start: 20220903, end: 20220903
  9. IDELVION [Suspect]
     Active Substance: COAGULATION FACTOR IX RECOMBINANT HUMAN
     Dosage: 1250 INTERNATIONAL UNIT, SINGLE
     Route: 042
     Dates: start: 20220905, end: 20220905
  10. IDELVION [Suspect]
     Active Substance: COAGULATION FACTOR IX RECOMBINANT HUMAN
     Dosage: 1250 INTERNATIONAL UNIT, SINGLE
     Route: 042
     Dates: start: 20220905, end: 20220905

REACTIONS (3)
  - Humerus fracture [Recovering/Resolving]
  - Joint swelling [Recovering/Resolving]
  - Arthralgia [Recovering/Resolving]

NARRATIVE: CASE EVENT DATE: 20220903
